FAERS Safety Report 22323772 (Version 2)
Quarter: 2025Q4

REPORT INFORMATION
  Report Type: Report from Study
  Country: EG (occurrence: EG)
  Receive Date: 20230516
  Receipt Date: 20251015
  Transmission Date: 20260117
  Serious: Yes (Hospitalization, Other)
  Sender: NOVARTIS
  Company Number: EG-002147023-NVSC2023EG109901

PATIENT
  Age: 26 Year
  Sex: Female
  Weight: 50 kg

DRUGS (1)
  1. GILENYA [Suspect]
     Active Substance: FINGOLIMOD HYDROCHLORIDE
     Indication: Multiple sclerosis
     Dosage: 0.5 MG, (ONE CAP PER DAY DAILY, SOMETIMES THE DOCTOR ASKED TO TAKE ONE CAP EACH OTHER DAY)
     Route: 048
     Dates: start: 2019, end: 202110

REACTIONS (5)
  - Multiple sclerosis relapse [Recovered/Resolved]
  - Discomfort [Recovered/Resolved]
  - Motor dysfunction [Recovered/Resolved]
  - Maternal exposure before pregnancy [Unknown]
  - Normal newborn [Unknown]

NARRATIVE: CASE EVENT DATE: 20220501
